FAERS Safety Report 21693970 (Version 4)
Quarter: 2023Q1

REPORT INFORMATION
  Report Type: Spontaneous
  Country: US (occurrence: US)
  Receive Date: 20221207
  Receipt Date: 20230328
  Transmission Date: 20230418
  Serious: No
  Sender: FDA-Public Use
  Company Number: US-BIOGEN-2022BI01145784

PATIENT
  Sex: Female

DRUGS (4)
  1. TECFIDERA [Suspect]
     Active Substance: DIMETHYL FUMARATE
     Indication: Multiple sclerosis
     Route: 050
     Dates: start: 20220707
  2. TECFIDERA [Suspect]
     Active Substance: DIMETHYL FUMARATE
     Route: 050
     Dates: end: 20220804
  3. TECFIDERA [Suspect]
     Active Substance: DIMETHYL FUMARATE
     Route: 050
     Dates: start: 202208
  4. FLOMAX [Suspect]
     Active Substance: TAMSULOSIN HYDROCHLORIDE
     Indication: Urine flow decreased
     Route: 050

REACTIONS (8)
  - Product dose omission issue [Recovered/Resolved]
  - Fatigue [Unknown]
  - Syncope [Unknown]
  - Skin mass [Unknown]
  - Urine flow decreased [Unknown]
  - Dizziness [Unknown]
  - Head injury [Unknown]
  - Flushing [Unknown]

NARRATIVE: CASE EVENT DATE: 20220101
